FAERS Safety Report 17720840 (Version 1)
Quarter: 2020Q2

REPORT INFORMATION
  Report Type: Spontaneous
  Country: US (occurrence: US)
  Receive Date: 20200428
  Receipt Date: 20200428
  Transmission Date: 20200714
  Serious: No
  Sender: FDA-Public Use
  Company Number: US-ROCHE-2553920

PATIENT
  Sex: Male

DRUGS (2)
  1. AVASTIN [Suspect]
     Active Substance: BEVACIZUMAB
     Indication: GLIOBLASTOMA
     Dosage: 7.5 MG /KG
     Route: 042
     Dates: start: 20120201
  2. AVASTIN [Suspect]
     Active Substance: BEVACIZUMAB
     Dosage: OTHER?INJ 400MG/16ML
     Route: 042
     Dates: start: 202002

REACTIONS (3)
  - Intentional product use issue [Unknown]
  - Off label use [Unknown]
  - No adverse event [Unknown]
